FAERS Safety Report 9245024 (Version 3)
Quarter: 2013Q2

REPORT INFORMATION
  Report Type: Spontaneous
  Country: US (occurrence: US)
  Receive Date: 20130422
  Receipt Date: 20130513
  Transmission Date: 20140414
  Serious: Yes (Hospitalization, Other)
  Sender: FDA-Public Use
  Company Number: US-JNJFOC-20130405256

PATIENT
  Sex: Female
  Weight: 65.77 kg

DRUGS (10)
  1. DURAGESIC [Suspect]
     Indication: BACK INJURY
     Route: 062
     Dates: start: 2000, end: 2009
  2. DURAGESIC [Suspect]
     Indication: NEOPLASM MALIGNANT
     Route: 062
     Dates: start: 2000, end: 2009
  3. DURAGESIC [Suspect]
     Indication: BACK INJURY
     Route: 062
     Dates: start: 2009
  4. DURAGESIC [Suspect]
     Indication: NEOPLASM MALIGNANT
     Route: 062
     Dates: start: 2009
  5. FENTANYL TRANSDERMAL SYSTEM [Suspect]
     Indication: BACK INJURY
     Route: 062
     Dates: start: 2012, end: 2012
  6. FENTANYL TRANSDERMAL SYSTEM [Suspect]
     Indication: NEOPLASM MALIGNANT
     Route: 062
     Dates: start: 2012, end: 2012
  7. WATSON FENTANYL TRANSDERMAL SYSTEM [Suspect]
     Indication: BACK INJURY
     Route: 062
     Dates: start: 2012, end: 2012
  8. WATSON FENTANYL TRANSDERMAL SYSTEM [Suspect]
     Indication: NEOPLASM MALIGNANT
     Route: 062
     Dates: start: 2012, end: 2012
  9. MYLAN FENTANYL TRANSDERMAL SYSTEM [Suspect]
     Indication: BACK INJURY
     Route: 062
  10. MYLAN FENTANYL TRANSDERMAL SYSTEM [Suspect]
     Indication: NEOPLASM MALIGNANT
     Route: 062

REACTIONS (7)
  - Transient ischaemic attack [Recovered/Resolved]
  - Fear [Unknown]
  - Hypersensitivity [Recovered/Resolved]
  - Physical assault [Recovered/Resolved]
  - Pain [Not Recovered/Not Resolved]
  - Product quality issue [Unknown]
  - Hyperhidrosis [Unknown]
